FAERS Safety Report 4835526-X (Version None)
Quarter: 2005Q4

REPORT INFORMATION
  Report Type: 
  Country: None (occurrence: None)
  Receive Date: 20051123
  Receipt Date: 20051115
  Transmission Date: 20060501
  Serious: Yes (Hospitalization)
  Sender: FDA-Public Use
  Company Number: NZ-ABBOTT-05P-118-0317344-00

PATIENT
  Age: 22 Year
  Sex: Male

DRUGS (1)
  1. EPILIM 200MG [Suspect]
     Indication: DRUG USE FOR UNKNOWN INDICATION
     Dosage: 40 UNITS ONCE
     Route: 065

REACTIONS (11)
  - APNOEIC ATTACK [None]
  - ATRIAL FIBRILLATION [None]
  - BLOOD CREATINE PHOSPHOKINASE INCREASED [None]
  - BRADYCARDIA [None]
  - DEPRESSED LEVEL OF CONSCIOUSNESS [None]
  - HYPERNATRAEMIA [None]
  - HYPOGLYCAEMIA [None]
  - HYPOTENSION [None]
  - HYPOTHERMIA [None]
  - OVERDOSE [None]
  - RHABDOMYOLYSIS [None]
